FAERS Safety Report 8454351-4 (Version None)
Quarter: 2012Q2

REPORT INFORMATION
  Report Type: 
  Country: None (occurrence: None)
  Receive Date: 20120621
  Receipt Date: 20120425
  Transmission Date: 20120825
  Serious: No
  Sender: FDA-Public Use
  Company Number: US-ALLERGAN-1205005US

PATIENT
  Age: 75 Year
  Sex: Female

DRUGS (6)
  1. ALPHAGAN [Suspect]
     Indication: GLAUCOMA
     Dosage: UNK
     Route: 047
  2. FISH OIL [Concomitant]
     Indication: PRODUCT USED FOR UNKNOWN INDICATION
     Dosage: UNK
     Route: 048
  3. HYPERTENSION MEDICATION UNSPECIFIED [Concomitant]
     Indication: HYPERTENSION
     Dosage: UNK
  4. LUMIGAN [Suspect]
     Indication: GLAUCOMA
     Dosage: UNK
     Route: 047
     Dates: start: 20111101, end: 20120401
  5. VITAMINS UNSPECIFIED [Concomitant]
     Dosage: UNK
  6. PRESERVISION LUTEIN EYE VITA.+MIN.SUP.SOFTG. [Concomitant]
     Indication: PRODUCT USED FOR UNKNOWN INDICATION
     Dosage: UNK
     Route: 047

REACTIONS (4)
  - OCULAR DISCOMFORT [None]
  - CHROMATOPSIA [None]
  - DRY EYE [None]
  - OCULAR HYPERAEMIA [None]
